FAERS Safety Report 15029105 (Version 1)
Quarter: 2018Q2

REPORT INFORMATION
  Report Type: Spontaneous
  Country: FR (occurrence: FR)
  Receive Date: 20180619
  Receipt Date: 20180619
  Transmission Date: 20180711
  Serious: Yes (Hospitalization)
  Sender: FDA-Public Use
  Company Number: FR-PFIZER INC-2018240577

PATIENT
  Age: 71 Year
  Sex: Female
  Weight: 63 kg

DRUGS (2)
  1. PACLITAXEL TEVA [Suspect]
     Active Substance: PACLITAXEL
     Indication: ENDOMETRIAL ADENOCARCINOMA
     Dosage: 175 MG/M2, CYCLIC (CYCLE OF 21DAYS)
     Route: 041
     Dates: start: 20180308
  2. CARBOPLATINE HOSPIRA [Suspect]
     Active Substance: CARBOPLATIN
     Indication: ENDOMETRIAL ADENOCARCINOMA
     Dosage: 500 MG, CYCLIC (CYCLE OF 21 DAYS)
     Route: 041
     Dates: start: 20180308

REACTIONS (3)
  - Infusion site dermatitis [Recovering/Resolving]
  - Infusion site extravasation [Recovered/Resolved]
  - Product use in unapproved indication [Unknown]

NARRATIVE: CASE EVENT DATE: 20180308
